FAERS Safety Report 7746784-6 (Version None)
Quarter: 2011Q3

REPORT INFORMATION
  Report Type: 
  Country: None (occurrence: None)
  Receive Date: 20110907
  Receipt Date: 20110823
  Transmission Date: 20111222
  Serious: Yes (Disabling)
  Sender: FDA-Public Use
  Company Number: JP-1187531

PATIENT
  Age: 69 Year
  Sex: Male

DRUGS (3)
  1. BSS PLUS INTRAOCULAR SOLUTIN (BSS PLUS) [Suspect]
     Indication: CATARACT OPERATION
     Dosage: (150 MLINTRAOCULAR)
     Route: 031
     Dates: start: 20110809, end: 20110809
  2. OPEGAN HI (OPEGAN HI) (NOT SPECIFIED) [Suspect]
     Indication: CATARACT OPERATION
     Dosage: (1 ML INTRAOCULAR)
     Route: 031
     Dates: start: 20110809, end: 20110809
  3. BOSMIN (BOSMIN) (DAIICHI SEIYAKU COMPANY LTD.) [Suspect]
     Indication: CATARACT OPERATION
     Dosage: 90.8 ML INTRAOCULAR)
     Route: 031
     Dates: start: 20110809, end: 20110809

REACTIONS (5)
  - NEEDLE ISSUE [None]
  - DEVICE ISSUE [None]
  - CORNEAL DISORDER [None]
  - PRODUCT QUALITY ISSUE [None]
  - SYRINGE ISSUE [None]
